FAERS Safety Report 14667176 (Version 4)
Quarter: 2018Q2

REPORT INFORMATION
  Report Type: Spontaneous
  Country: US (occurrence: US)
  Receive Date: 20180322
  Receipt Date: 20180430
  Transmission Date: 20180711
  Serious: Yes (Other)
  Sender: FDA-Public Use
  Company Number: US-HORIZON-KRY-0070-2018

PATIENT
  Age: 43 Year
  Sex: Male

DRUGS (3)
  1. BENADRYL [Concomitant]
     Active Substance: DIPHENHYDRAMINE HYDROCHLORIDE
  2. DECADRON [Concomitant]
     Active Substance: DEXAMETHASONE
  3. KRYSTEXXA [Suspect]
     Active Substance: PEGLOTICASE
     Indication: GOUT
     Dosage: 8 MG EVERY 2 WEEKS
     Dates: end: 20180208

REACTIONS (3)
  - Drug specific antibody present [Unknown]
  - Infusion related reaction [Recovered/Resolved]
  - Therapeutic response decreased [Unknown]

NARRATIVE: CASE EVENT DATE: 20180208
